FAERS Safety Report 5138978-3 (Version None)
Quarter: 2006Q4

REPORT INFORMATION
  Report Type: 
  Country: None (occurrence: None)
  Receive Date: 20061030
  Receipt Date: 20060526
  Transmission Date: 20070319
  Serious: No
  Sender: FDA-Public Use
  Company Number: US-GLAXOSMITHKLINE-A0607087A

PATIENT
  Age: 74 Year
  Sex: Female

DRUGS (8)
  1. ADVAIR HFA [Suspect]
     Indication: DRUG USE FOR UNKNOWN INDICATION
     Dosage: 1PUFF TWICE PER DAY
     Route: 055
     Dates: start: 20050101
  2. GLYCOLAX [Concomitant]
  3. PULMICORT [Concomitant]
  4. ALPRAZOLAM [Concomitant]
  5. WARFARIN SODIUM [Concomitant]
  6. XOPENEX [Concomitant]
  7. FUROSEMIDE [Concomitant]
  8. TAPAZOLE [Concomitant]

REACTIONS (2)
  - DYSPNOEA [None]
  - PHARMACEUTICAL PRODUCT COMPLAINT [None]
